FAERS Safety Report 10141750 (Version 1)
Quarter: 2014Q2

REPORT INFORMATION
  Report Type: Spontaneous
  Country: FR (occurrence: FR)
  Receive Date: 20140429
  Receipt Date: 20140429
  Transmission Date: 20141212
  Serious: Yes (Death, Hospitalization, Other)
  Sender: FDA-Public Use
  Company Number: FR-BRISTOL-MYERS SQUIBB COMPANY-20664876

PATIENT
  Age: 70 Year
  Sex: Male

DRUGS (7)
  1. SPRYCEL [Suspect]
     Indication: ANAL CANCER METASTATIC
     Route: 048
     Dates: end: 20140319
  2. PROFENID [Concomitant]
     Dosage: CAPSULE
  3. TAMSULOSIN [Concomitant]
  4. MOPRAL [Concomitant]
     Dosage: GASTRO-RESISTANT TABLET
  5. KEPPRA [Concomitant]
     Dosage: 100 MG/ML ORAL SOLN
     Route: 048
  6. SINGULAIR [Concomitant]
  7. CORTANCYL [Concomitant]

REACTIONS (4)
  - Death [Fatal]
  - Colitis [Recovered/Resolved with Sequelae]
  - Convulsion [Unknown]
  - Off label use [Unknown]
